FAERS Safety Report 6497315-2 (Version None)
Quarter: 2009Q4

REPORT INFORMATION
  Report Type: 
  Country: None (occurrence: None)
  Receive Date: 20091215
  Receipt Date: 20090908
  Transmission Date: 20100525
  Serious: No
  Sender: FDA-Public Use
  Company Number: A0806366A

PATIENT
  Age: 56 Year
  Sex: Female

DRUGS (7)
  1. AVODART [Suspect]
     Dosage: 1CAP PER DAY
     Route: 048
     Dates: start: 20090601
  2. LITHIUM [Concomitant]
  3. EFFEXOR [Concomitant]
  4. AMBIEN [Concomitant]
  5. ESTROGEN/PROGESTERONE [Concomitant]
  6. LIPITOR [Concomitant]
  7. ALDACTONE [Concomitant]

REACTIONS (1)
  - DRUG ADMINISTRATION ERROR [None]
